FAERS Safety Report 16141230 (Version 1)
Quarter: 2019Q2

REPORT INFORMATION
  Report Type: Spontaneous
  Country: GB (occurrence: GB)
  Receive Date: 20190401
  Receipt Date: 20190401
  Transmission Date: 20190711
  Serious: Yes (Hospitalization, Disabling, Other)
  Sender: FDA-Public Use
  Company Number: GB-MYLANLABS-2019M1028541

PATIENT
  Age: 72 Year
  Sex: Female
  Weight: 79 kg

DRUGS (2)
  1. VITAMIN B12 [Concomitant]
     Active Substance: CYANOCOBALAMIN
     Dosage: UNK
  2. ATORVASTATIN [Suspect]
     Active Substance: ATORVASTATIN
     Indication: BLOOD CHOLESTEROL INCREASED
     Dosage: 40 MILLIGRAM
     Route: 048
     Dates: start: 20180424, end: 20180625

REACTIONS (3)
  - Dysarthria [Unknown]
  - Myasthenia gravis [Recovering/Resolving]
  - Dysphagia [Unknown]

NARRATIVE: CASE EVENT DATE: 20180601
